FAERS Safety Report 5127363-6 (Version None)
Quarter: 2006Q4

REPORT INFORMATION
  Report Type: 
  Country: None (occurrence: None)
  Receive Date: 20061010
  Receipt Date: 20061003
  Transmission Date: 20070319
  Serious: Yes (Other)
  Sender: FDA-Public Use
  Company Number: B0440964A

PATIENT
  Age: 55 Year
  Sex: Male
  Weight: 72.1673 kg

DRUGS (8)
  1. AVANDIA [Suspect]
     Indication: DRUG USE FOR UNKNOWN INDICATION
  2. METFORMIN HYDROCHLORIDE [Concomitant]
  3. FENOFIBRATE [Concomitant]
  4. ATORVASTATIN CALCIUM [Concomitant]
  5. AMLODIPINE [Concomitant]
  6. HYDROCHLOROTHIAZIDE [Concomitant]
  7. QUINAPRIL [Concomitant]
  8. METOPROLOL TARTRATE [Concomitant]

REACTIONS (2)
  - BLOOD TRIGLYCERIDES INCREASED [None]
  - HIGH DENSITY LIPOPROTEIN DECREASED [None]
